FAERS Safety Report 18278914 (Version 1)
Quarter: 2020Q3

REPORT INFORMATION
  Report Type: Report from Study
  Country: GB (occurrence: GB)
  Receive Date: 20200917
  Receipt Date: 20200917
  Transmission Date: 20201103
  Serious: Yes (Death, Life-Threatening)
  Sender: FDA-Public Use
  Company Number: GB-B.I. PHARMACEUTICALS,INC./RIDGEFIELD-2020-BI-048465

PATIENT
  Age: 65 Year
  Sex: Male

DRUGS (15)
  1. PERSANTIN [Suspect]
     Active Substance: DIPYRIDAMOLE
     Indication: VENTRICULAR FIBRILLATION
  2. AMIODARONE [Suspect]
     Active Substance: AMIODARONE
     Indication: VENTRICULAR FIBRILLATION
     Dosage: UNK
  3. DOPAMINE HCL [Suspect]
     Active Substance: DOPAMINE HYDROCHLORIDE
     Indication: CARDIAC ARREST
  4. PERSANTIN [Suspect]
     Active Substance: DIPYRIDAMOLE
     Indication: CARDIAC ARREST
  5. DOBUTAMINE HCL [Suspect]
     Active Substance: DOBUTAMINE HYDROCHLORIDE
     Indication: CARDIAC ARREST
  6. STREPTOKINASE [Suspect]
     Active Substance: STREPTOKINASE
     Indication: VENTRICULAR FIBRILLATION
  7. DOPAMINE HCL [Suspect]
     Active Substance: DOPAMINE HYDROCHLORIDE
     Indication: PULMONARY OEDEMA
     Dosage: UNK
     Route: 042
  8. AMIODARONE [Suspect]
     Active Substance: AMIODARONE
     Indication: PULMONARY OEDEMA
  9. STREPTOKINASE [Suspect]
     Active Substance: STREPTOKINASE
     Indication: CARDIAC ARREST
  10. STREPTOKINASE [Suspect]
     Active Substance: STREPTOKINASE
     Indication: PULMONARY OEDEMA
     Dosage: UNK
  11. DOBUTAMINE HCL [Suspect]
     Active Substance: DOBUTAMINE HYDROCHLORIDE
     Indication: VENTRICULAR FIBRILLATION
     Dosage: UNK
     Route: 042
  12. DOBUTAMINE HCL [Suspect]
     Active Substance: DOBUTAMINE HYDROCHLORIDE
     Indication: PULMONARY OEDEMA
  13. AMIODARONE [Suspect]
     Active Substance: AMIODARONE
     Indication: CARDIAC ARREST
  14. DOPAMINE HCL [Suspect]
     Active Substance: DOPAMINE HYDROCHLORIDE
     Indication: VENTRICULAR FIBRILLATION
  15. PERSANTIN [Suspect]
     Active Substance: DIPYRIDAMOLE
     Indication: PULMONARY OEDEMA
     Dosage: UNK

REACTIONS (1)
  - Hypotension [Fatal]
